FAERS Safety Report 8832413 (Version 1)
Quarter: 2012Q4

REPORT INFORMATION
  Report Type: Spontaneous
  Country: GB (occurrence: None)
  Receive Date: 20121005
  Receipt Date: 20121005
  Transmission Date: 20130627
  Serious: Yes (Hospitalization, Other)
  Sender: FDA-Public Use
  Company Number: 2012P1059903

PATIENT
  Age: 2 Year
  Sex: Female

DRUGS (1)
  1. AMPHETAMINE [Suspect]
     Route: 048

REACTIONS (8)
  - Accidental exposure to product by child [None]
  - Agitation [None]
  - Confusional state [None]
  - Logorrhoea [None]
  - Mydriasis [None]
  - Pupillary reflex impaired [None]
  - Heart rate increased [None]
  - Poisoning [None]
